FAERS Safety Report 6646497-8 (Version None)
Quarter: 2010Q1

REPORT INFORMATION
  Report Type: 
  Country: None (occurrence: None)
  Receive Date: 20100322
  Receipt Date: 20100322
  Transmission Date: 20100710
  Serious: Yes (Other)
  Sender: FDA-Public Use
  Company Number: None

PATIENT
  Age: 30 Year
  Sex: Female
  Weight: 68.9467 kg

DRUGS (2)
  1. ORTHO TRI-CYCLEN LO [Suspect]
     Indication: PREGNANCY
     Dosage: WITH PILL OD OD PO
     Route: 048
     Dates: start: 20061101, end: 20090701
  2. ORTHO TRI-CYCLEN LO [Suspect]
     Indication: PREGNANCY
     Dosage: WITH PILL OD OD PO
     Route: 048
     Dates: start: 20090801, end: 20091001

REACTIONS (2)
  - DRUG INEFFECTIVE [None]
  - PREGNANCY ON ORAL CONTRACEPTIVE [None]
